FAERS Safety Report 17625439 (Version 1)
Quarter: 2020Q2

REPORT INFORMATION
  Report Type: Spontaneous
  Country: GB (occurrence: GB)
  Receive Date: 20200403
  Receipt Date: 20200403
  Transmission Date: 20200713
  Serious: Yes (Other)
  Sender: FDA-Public Use
  Company Number: GB-AUROBINDO-AUR-APL-2020-016101

PATIENT
  Age: 60 Year
  Sex: Male
  Weight: 69 kg

DRUGS (1)
  1. TAMSULOSIN [Suspect]
     Active Substance: TAMSULOSIN
     Indication: LOWER URINARY TRACT SYMPTOMS
     Dosage: 400 MICROGRAM
     Route: 048
     Dates: start: 20200106, end: 20200113

REACTIONS (1)
  - Retrograde ejaculation [Recovered/Resolved]

NARRATIVE: CASE EVENT DATE: 20200106
